FAERS Safety Report 11906910 (Version 1)
Quarter: 2016Q1

REPORT INFORMATION
  Report Type: Spontaneous
  Country: US (occurrence: US)
  Receive Date: 20160111
  Receipt Date: 20160111
  Transmission Date: 20160526
  Serious: No
  Sender: FDA-Public Use
  Company Number: US-PFIZER INC-2015476040

PATIENT
  Sex: Male

DRUGS (2)
  1. SUTENT [Suspect]
     Active Substance: SUNITINIB MALATE
     Dosage: 37.5 MG, DAILY
  2. SUTENT [Suspect]
     Active Substance: SUNITINIB MALATE
     Indication: RENAL CELL CARCINOMA
     Dosage: 50 UNK, UNK

REACTIONS (12)
  - Disease progression [Unknown]
  - Gait disturbance [Unknown]
  - Sleep disorder [Unknown]
  - Pain in extremity [Unknown]
  - Chills [Unknown]
  - Renal cell carcinoma [Unknown]
  - Swelling face [Unknown]
  - Eye swelling [Unknown]
  - Skin exfoliation [Unknown]
  - Fatigue [Unknown]
  - Diarrhoea [Unknown]
  - Campylobacter infection [Unknown]
